FAERS Safety Report 16638757 (Version 2)
Quarter: 2019Q3

REPORT INFORMATION
  Report Type: Spontaneous
  Country: KR (occurrence: KR)
  Receive Date: 20190726
  Receipt Date: 20190802
  Transmission Date: 20191004
  Serious: Yes (Hospitalization, Other)
  Sender: FDA-Public Use
  Company Number: KR-CELGENEUS-KOR-20190708140

PATIENT
  Sex: Female

DRUGS (3)
  1. ABRAXANE [Suspect]
     Active Substance: PACLITAXEL
     Indication: PANCREATIC CARCINOMA
     Route: 041
     Dates: start: 20180531
  2. GEMCITABINE. [Suspect]
     Active Substance: GEMCITABINE
     Indication: PANCREATIC CARCINOMA
     Route: 065
     Dates: start: 20180531
  3. ABRAXANE [Suspect]
     Active Substance: PACLITAXEL
     Route: 050

REACTIONS (4)
  - Haemolytic uraemic syndrome [Unknown]
  - Pancytopenia [Unknown]
  - Colitis [Unknown]
  - Neutropenia [Unknown]
